FAERS Safety Report 4365895-9 (Version None)
Quarter: 2004Q2

REPORT INFORMATION
  Report Type: 
  Country: None (occurrence: None)
  Receive Date: 20040527
  Receipt Date: 20040323
  Transmission Date: 20050107
  Serious: Yes (Death, Life-Threatening, Hospitalization)
  Sender: FDA-Public Use
  Company Number: JP-BRISTOL-MYERS SQUIBB COMPANY-12540399

PATIENT
  Age: 74 Year
  Sex: Female

DRUGS (2)
  1. TAXOL [Suspect]
     Indication: BREAST CANCER
     Dosage: THERAPY DATES: 06-FEB-2004 TO 12-MAR-2004
     Route: 042
     Dates: start: 20040312, end: 20040312
  2. HERCEPTIN [Suspect]
     Indication: BREAST CANCER
     Dosage: THERAPY FROM 06-FEB-2004 TO 12-MAR-2004
     Route: 042
     Dates: start: 20040312, end: 20040312

REACTIONS (4)
  - BREAST CANCER [None]
  - CARDIAC FAILURE [None]
  - INTERSTITIAL LUNG DISEASE [None]
  - LYMPHANGIOSIS CARCINOMATOSA [None]
